FAERS Safety Report 18389641 (Version 1)
Quarter: 2020Q4

REPORT INFORMATION
  Report Type: Spontaneous
  Country: DE (occurrence: DE)
  Receive Date: 20201016
  Receipt Date: 20201016
  Transmission Date: 20210114
  Serious: Yes (Other)
  Sender: FDA-Public Use
  Company Number: DE-ASTRAZENECA-2020SF31801

PATIENT
  Sex: Male

DRUGS (2)
  1. OSIMERTINIB. [Suspect]
     Active Substance: OSIMERTINIB
     Route: 065
  2. XALKORI [Suspect]
     Active Substance: CRIZOTINIB
     Route: 065

REACTIONS (2)
  - Disease progression [Unknown]
  - Ascites [Unknown]
